FAERS Safety Report 6272605-7 (Version None)
Quarter: 2009Q3

REPORT INFORMATION
  Report Type: 
  Country: None (occurrence: None)
  Receive Date: 20090713
  Receipt Date: 20090303
  Transmission Date: 20100115
  Serious: Yes (Other)
  Sender: FDA-Public Use
  Company Number: 618165

PATIENT
  Age: 56 Year
  Sex: Female

DRUGS (3)
  1. BONIVA [Suspect]
     Indication: DRUG USE FOR UNKNOWN INDICATION
     Dosage: 150 MG
     Dates: start: 20070101
  2. VICODIN [Suspect]
     Indication: ARTHRALGIA
  3. ACIPHEX [Concomitant]

REACTIONS (1)
  - GASTRIC ULCER [None]
